FAERS Safety Report 6606536-7 (Version None)
Quarter: 2010Q1

REPORT INFORMATION
  Report Type: 
  Country: None (occurrence: None)
  Receive Date: 20100226
  Receipt Date: 20100224
  Transmission Date: 20100710
  Serious: Yes (Death, Other)
  Sender: FDA-Public Use
  Company Number: PHHY2010GB04879

PATIENT
  Sex: Female

DRUGS (4)
  1. CLOZARIL [Suspect]
     Indication: SCHIZOPHRENIA
     Dosage: 537.5 MG DAILY
     Route: 048
     Dates: start: 20050510
  2. FEMULEN [Concomitant]
     Indication: CONTRACEPTION
     Dosage: 1 TABLET DAILY
     Route: 048
  3. CITALOPRAM HYDROBROMIDE [Concomitant]
     Dosage: 20 MG DAILY
     Route: 048
  4. OMEPRAZOLE [Concomitant]
     Indication: DYSPEPSIA
     Dosage: 20 MG DAILY

REACTIONS (4)
  - CHRONIC OBSTRUCTIVE PULMONARY DISEASE [None]
  - DEATH [None]
  - GENERAL PHYSICAL HEALTH DETERIORATION [None]
  - RESPIRATORY DISORDER [None]
